FAERS Safety Report 8349542-7 (Version None)
Quarter: 2012Q2

REPORT INFORMATION
  Report Type: 
  Country: None (occurrence: None)
  Receive Date: 20120508
  Receipt Date: 20120508
  Transmission Date: 20120825
  Serious: Yes (Hospitalization)
  Sender: FDA-Public Use
  Company Number: None

PATIENT
  Sex: Female
  Weight: 67.2 kg

DRUGS (1)
  1. TAXOL [Suspect]
     Dosage: 140 MG
     Dates: start: 20120419

REACTIONS (1)
  - INTERSTITIAL LUNG DISEASE [None]
